FAERS Safety Report 6718405-2 (Version None)
Quarter: 2010Q2

REPORT INFORMATION
  Report Type: 
  Country: None (occurrence: None)
  Receive Date: 20100510
  Receipt Date: 20100426
  Transmission Date: 20101027
  Serious: Yes (Other)
  Sender: FDA-Public Use
  Company Number: US-MYLANLABS-2010S1007140

PATIENT
  Age: 79 Year
  Sex: Male

DRUGS (8)
  1. WARFARIN SODIUM [Suspect]
     Dosage: ON MONDAYS AND FRIDAYS
     Route: 065
  2. WARFARIN SODIUM [Interacting]
     Dosage: ON TUESDAYS/WEDNESDAYS/THURSDAYS/SATURDAYS/SUNDAYS
     Route: 065
  3. DILTIAZEM HCL [Concomitant]
     Route: 065
  4. HYDROMORPHONE HCL [Concomitant]
     Route: 065
  5. TAMSULOSIN HCL [Concomitant]
     Route: 065
  6. PREDNISOLONE [Concomitant]
     Route: 047
  7. SIMVASTATIN [Concomitant]
     Route: 065
  8. ESZOPICLONE [Concomitant]
     Route: 065

REACTIONS (2)
  - DRUG INTERACTION [None]
  - INTERNATIONAL NORMALISED RATIO INCREASED [None]
